FAERS Safety Report 9745027 (Version 14)
Quarter: 2015Q3

REPORT INFORMATION
  Report Type: Report from Study
  Country: CA (occurrence: CA)
  Receive Date: 20131211
  Receipt Date: 20150825
  Transmission Date: 20151125
  Serious: Yes (Hospitalization, Other)
  Sender: FDA-Public Use
  Company Number: CA-ROCHE-681181

PATIENT
  Age: 31 Year
  Sex: Female
  Weight: 97.61 kg

DRUGS (13)
  1. SULFASALAZINE. [Concomitant]
     Active Substance: SULFASALAZINE
  2. RITUXAN [Suspect]
     Active Substance: RITUXIMAB
     Dosage: SECOND INFUSION INTERRUPTED AND RESTARTED AT 12.25 ML, THEN 25 ML AND APPROX. 75 ML WAS ABSORBED.
     Route: 042
  3. ACTEMRA [Suspect]
     Active Substance: TOCILIZUMAB
     Route: 042
     Dates: start: 20130618
  4. PLAQUENIL [Concomitant]
     Active Substance: HYDROXYCHLOROQUINE SULFATE
  5. DIPHENHYDRAMINE HCL [Concomitant]
     Active Substance: DIPHENHYDRAMINE HYDROCHLORIDE
     Indication: PREMEDICATION
     Route: 048
     Dates: start: 20100108, end: 20100122
  6. NORMAL SALINE [Concomitant]
     Active Substance: SODIUM CHLORIDE
     Dosage: TO KEEP IV LINE OPEN?ALSO RECEIVED FOR ANAPHYLACTIC REACTION
     Route: 042
     Dates: start: 20100122, end: 20100122
  7. FOLIC ACID. [Concomitant]
     Active Substance: FOLIC ACID
  8. METHYLPREDNISOLONE. [Concomitant]
     Active Substance: METHYLPREDNISOLONE
     Indication: PREMEDICATION
     Route: 042
     Dates: start: 20100108, end: 20100122
  9. METHOTREXATE [Concomitant]
     Active Substance: METHOTREXATE
     Route: 058
  10. ACTEMRA [Suspect]
     Active Substance: TOCILIZUMAB
     Indication: RHEUMATOID ARTHRITIS
     Route: 042
     Dates: start: 20130521
  11. RITUXAN [Suspect]
     Active Substance: RITUXIMAB
     Indication: RHEUMATOID ARTHRITIS
     Dosage: FREQUENCY: DAY 1, 15
     Route: 042
     Dates: start: 20100108, end: 20100122
  12. ACETAMINOPHEN. [Concomitant]
     Active Substance: ACETAMINOPHEN
     Indication: PREMEDICATION
     Route: 048
     Dates: start: 20100108, end: 20100122
  13. PREDNISONE. [Concomitant]
     Active Substance: PREDNISONE

REACTIONS (20)
  - Vascular rupture [Unknown]
  - Pain [Unknown]
  - Swelling [Unknown]
  - Headache [Recovered/Resolved]
  - Hypotension [Unknown]
  - Vomiting [Recovering/Resolving]
  - Bone disorder [Not Recovered/Not Resolved]
  - Joint swelling [Unknown]
  - Foot fracture [Not Recovered/Not Resolved]
  - Nausea [Recovering/Resolving]
  - Fall [Unknown]
  - Body temperature decreased [Unknown]
  - Upper limb fracture [Unknown]
  - Procedural haemorrhage [Unknown]
  - Body temperature decreased [Unknown]
  - Anxiety [Not Recovered/Not Resolved]
  - Ligament sprain [Unknown]
  - Anaphylactic reaction [Recovered/Resolved]
  - Arthralgia [Not Recovered/Not Resolved]
  - Weight increased [Not Recovered/Not Resolved]

NARRATIVE: CASE EVENT DATE: 20100122
